FAERS Safety Report 14259575 (Version 3)
Quarter: 2018Q4

REPORT INFORMATION
  Report Type: Spontaneous
  Country: US (occurrence: US)
  Receive Date: 20171207
  Receipt Date: 20181003
  Transmission Date: 20190204
  Serious: Yes (Death)
  Sender: FDA-Public Use
  Company Number: US-PFIZER INC-2017322228

PATIENT
  Age: 19 Year
  Sex: Male

DRUGS (1)
  1. XELJANZ [Suspect]
     Active Substance: TOFACITINIB CITRATE
     Indication: HEPATOSPLENIC T-CELL LYMPHOMA
     Dosage: 5 MG, 2X/DAY, 30 DAY SUPPLY (REFILLS UP TO 11)
     Route: 048

REACTIONS (2)
  - Neoplasm progression [Fatal]
  - Product use in unapproved indication [Unknown]
